FAERS Safety Report 24039644 (Version 1)
Quarter: 2024Q3

REPORT INFORMATION
  Report Type: Spontaneous
  Country: FR (occurrence: FR)
  Receive Date: 20240702
  Receipt Date: 20240702
  Transmission Date: 20241017
  Serious: Yes (Hospitalization, Other)
  Sender: SANOFI AVENTIS
  Company Number: None

PATIENT
  Age: 66 Year
  Sex: Female
  Weight: 70 kg

DRUGS (3)
  1. IRBESARTAN [Suspect]
     Active Substance: IRBESARTAN
     Dosage: 300MG, QD
     Route: 048
     Dates: start: 202402, end: 20240614
  2. ASPIRIN [Suspect]
     Active Substance: ASPIRIN
     Dosage: 75MG, QD
     Route: 048
     Dates: end: 20240614
  3. ATORVASTATIN CALCIUM TRIHYDRATE\EZETIMIBE [Suspect]
     Active Substance: ATORVASTATIN CALCIUM TRIHYDRATE\EZETIMIBE
     Dosage: 1DF, QD
     Route: 048
     Dates: end: 20240614

REACTIONS (1)
  - Haemolytic anaemia [Not Recovered/Not Resolved]

NARRATIVE: CASE EVENT DATE: 20240531
